FAERS Safety Report 11420474 (Version 1)
Quarter: 2015Q3

REPORT INFORMATION
  Report Type: Spontaneous
  Country: US (occurrence: US)
  Receive Date: 20150826
  Receipt Date: 20150826
  Transmission Date: 20151125
  Serious: No
  Sender: FDA-Public Use
  Company Number: US-EISAI MEDICAL RESEARCH-EC-2015-009754

PATIENT
  Age: 62 Year
  Sex: Female
  Weight: 109 kg

DRUGS (8)
  1. ZYRTEC [Concomitant]
     Active Substance: CETIRIZINE HYDROCHLORIDE
     Indication: CYSTITIS INTERSTITIAL
     Dosage: UNKNOWN
     Route: 048
  2. BELVIQ [Suspect]
     Active Substance: LORCASERIN HYDROCHLORIDE
     Indication: WEIGHT DECREASED
     Route: 048
     Dates: start: 201507
  3. MICARDIS HCT 40/12.5 [Concomitant]
     Indication: HYPERTENSION
     Route: 048
  4. ZOCOR [Concomitant]
     Active Substance: SIMVASTATIN
     Indication: BLOOD CHOLESTEROL INCREASED
     Route: 048
  5. ELMIRON [Concomitant]
     Active Substance: PENTOSAN POLYSULFATE SODIUM
     Indication: CYSTITIS INTERSTITIAL
     Route: 048
  6. SERTRALINE [Concomitant]
     Active Substance: SERTRALINE HYDROCHLORIDE
     Indication: DEPRESSION
     Dosage: ? TABLET
     Route: 048
  7. ALOE VERA [Concomitant]
     Active Substance: ALOE VERA LEAF
     Indication: CYSTITIS INTERSTITIAL
     Dosage: 3 CAPSULES TWICE DAILY, UP TO 4 CAPSULES?EVERY 6 HOURS FOR FLARE-UPS
     Route: 048
  8. AMITRIPTYLINE [Concomitant]
     Active Substance: AMITRIPTYLINE
     Indication: CYSTITIS INTERSTITIAL
     Dosage: UNKNOWN
     Route: 048

REACTIONS (1)
  - Fatigue [Not Recovered/Not Resolved]

NARRATIVE: CASE EVENT DATE: 201507
